FAERS Safety Report 5976761-7 (Version None)
Quarter: 2008Q4

REPORT INFORMATION
  Report Type: 
  Country: None (occurrence: None)
  Receive Date: 20081203
  Receipt Date: 20081121
  Transmission Date: 20090506
  Serious: Yes (Hospitalization, Other)
  Sender: FDA-Public Use
  Company Number: US-BAYER-200832535NA

PATIENT
  Age: 51 Year
  Sex: Female
  Weight: 71 kg

DRUGS (8)
  1. BETASERON [Suspect]
     Indication: RELAPSING-REMITTING MULTIPLE SCLEROSIS
     Dosage: TOTAL DAILY DOSE: 2 MIU
     Route: 058
     Dates: start: 20081009, end: 20081023
  2. BETASERON [Suspect]
     Dates: start: 20010330, end: 20060425
  3. PRILOSEC [Concomitant]
  4. SYNTHROID [Concomitant]
     Dosage: TOTAL DAILY DOSE: 75 ?G
  5. VITAMIN B COMPLEX CAP [Concomitant]
  6. CALTRATE [Concomitant]
     Dates: start: 20070101
  7. VITAMIN D3 [Concomitant]
  8. STEROIDS [Concomitant]
     Route: 042
     Dates: start: 20080801

REACTIONS (13)
  - CAROTID ARTERY OCCLUSION [None]
  - CEREBROVASCULAR ACCIDENT [None]
  - COGNITIVE DISORDER [None]
  - DEPRESSION [None]
  - FATIGUE [None]
  - GAIT DISTURBANCE [None]
  - HEADACHE [None]
  - HYPERTENSION [None]
  - MEMORY IMPAIRMENT [None]
  - MULTIPLE SCLEROSIS [None]
  - STRESS [None]
  - SUICIDE ATTEMPT [None]
  - TREMOR [None]
